FAERS Safety Report 14587263 (Version 1)
Quarter: 2018Q1

REPORT INFORMATION
  Report Type: Spontaneous
  Country: US (occurrence: US)
  Receive Date: 20180228
  Receipt Date: 20180228
  Transmission Date: 20180509
  Serious: Yes (Life-Threatening, Disabling, Other)
  Sender: FDA-Public Use
  Company Number: None

PATIENT
  Age: 39 Year
  Sex: Female
  Weight: 57.15 kg

DRUGS (2)
  1. MULTIVITAMIN [Concomitant]
     Active Substance: VITAMINS
  2. CLARITHROMYCIN 250MG [Suspect]
     Active Substance: CLARITHROMYCIN
     Indication: INFECTION
     Dosage: ?          QUANTITY:28 TABLET(S);?
     Route: 048
     Dates: start: 20180219, end: 20180227

REACTIONS (6)
  - Weight increased [None]
  - Hypertension [None]
  - Breast pain [None]
  - Chest pain [None]
  - Abdominal discomfort [None]
  - Breast swelling [None]

NARRATIVE: CASE EVENT DATE: 20180219
